FAERS Safety Report 6912939-3 (Version None)
Quarter: 2010Q3

REPORT INFORMATION
  Report Type: 
  Country: None (occurrence: None)
  Receive Date: 20100806
  Receipt Date: 20090407
  Transmission Date: 20110219
  Serious: No
  Sender: FDA-Public Use
  Company Number: US-PFIZER INC-2009167645

PATIENT
  Sex: Female
  Weight: 87.1 kg

DRUGS (5)
  1. DETROL LA [Suspect]
     Indication: URINARY INCONTINENCE
     Dosage: 4 MG, 1X/DAY
     Dates: start: 20090206
  2. LEXAPRO [Concomitant]
     Dosage: UNK
  3. KLONOPIN [Concomitant]
     Indication: ANXIETY
     Dosage: UNK
  4. ATIVAN [Concomitant]
     Dosage: 1 MG, 1X/DAY
  5. PROTONIX [Concomitant]
     Dosage: UNK

REACTIONS (4)
  - EYE DISORDER [None]
  - FEELING ABNORMAL [None]
  - HEADACHE [None]
  - PANIC REACTION [None]
